FAERS Safety Report 9221537 (Version 1)
Quarter: 2013Q2

REPORT INFORMATION
  Report Type: Spontaneous
  Country: US (occurrence: None)
  Receive Date: 20130408
  Receipt Date: 20130408
  Transmission Date: 20140414
  Serious: Yes (Hospitalization)
  Sender: FDA-Public Use
  Company Number: None

PATIENT
  Age: 20 Year
  Sex: Female
  Weight: 52.16 kg

DRUGS (1)
  1. EPIDUO [Suspect]
     Indication: ACNE
     Dosage: PEA SIZE AMOUNT
     Route: 061
     Dates: start: 20130401, end: 20130403

REACTIONS (5)
  - Swelling face [None]
  - Erythema [None]
  - Facial pain [None]
  - Pruritus [None]
  - Burning sensation [None]
